FAERS Safety Report 8675913 (Version 3)
Quarter: 2013Q3

REPORT INFORMATION
  Report Type: Report from Study
  Country: US (occurrence: US)
  Receive Date: 20120720
  Receipt Date: 20130711
  Transmission Date: 20140515
  Serious: Yes (Other)
  Sender: FDA-Public Use
  Company Number: PHEH2012US012457

PATIENT
  Age: 78 Year
  Sex: Female

DRUGS (9)
  1. GLEEVEC [Suspect]
     Indication: CHRONIC MYELOID LEUKAEMIA
     Dosage: 300 MG,
     Route: 048
  2. GLEEVEC [Suspect]
     Dosage: 400 MG, DAILY
     Route: 048
     Dates: start: 20091223
  3. SYNTHROID [Suspect]
     Indication: THYROID DISORDER
     Dosage: 88 MG, DAILY
     Route: 048
  4. PANTOPRAZOLE [Concomitant]
     Indication: GASTROOESOPHAGEAL REFLUX DISEASE
     Dosage: 40 MG, DAILY
     Route: 048
  5. METOPROLOL TARTRATE [Concomitant]
     Indication: BLOOD PRESSURE
     Dosage: 0.5 DF, DAILY
     Route: 048
  6. ASPIRIN [Concomitant]
     Dosage: 81 MG, DAILY
     Route: 048
  7. MULTIVITAMIN [Concomitant]
     Route: 048
  8. OSCAL [Concomitant]
     Indication: BLOOD CALCIUM
     Route: 048
  9. METAMUCIL [Concomitant]
     Route: 048

REACTIONS (3)
  - Papillary thyroid cancer [Recovered/Resolved]
  - Second primary malignancy [Recovered/Resolved]
  - Muscle spasms [Recovered/Resolved]
